FAERS Safety Report 5563950-9 (Version None)
Quarter: 2007Q4

REPORT INFORMATION
  Report Type: 
  Country: None (occurrence: None)
  Receive Date: 20071217
  Receipt Date: 20071206
  Transmission Date: 20080405
  Serious: Yes (Other)
  Sender: FDA-Public Use
  Company Number: US-PFIZER INC-2007084004

PATIENT
  Sex: Male
  Weight: 72.6 kg

DRUGS (7)
  1. GEODON [Suspect]
     Indication: SCHIZOPHRENIA
  2. ZYPREXA [Interacting]
  3. KLONOPIN [Interacting]
  4. COGENTIN [Interacting]
  5. ATIVAN [Interacting]
  6. HALDOL [Interacting]
  7. THORAZINE [Interacting]

REACTIONS (8)
  - AGITATION [None]
  - ANGINA PECTORIS [None]
  - DRUG INTERACTION [None]
  - HEART RATE INCREASED [None]
  - OBSESSIVE-COMPULSIVE DISORDER [None]
  - PSYCHOMOTOR HYPERACTIVITY [None]
  - SOMNOLENCE [None]
  - SPEECH DISORDER [None]
